FAERS Safety Report 13732614 (Version 2)
Quarter: 2017Q3

REPORT INFORMATION
  Report Type: Spontaneous
  Country: US (occurrence: US)
  Receive Date: 20170707
  Receipt Date: 20170710
  Transmission Date: 20171127
  Serious: Yes (Other)
  Sender: FDA-Public Use
  Company Number: US-TEVA-784172USA

PATIENT
  Sex: Female

DRUGS (4)
  1. ZOLOFT [Concomitant]
     Active Substance: SERTRALINE HYDROCHLORIDE
  2. RISPERDAL [Concomitant]
     Active Substance: RISPERIDONE
     Route: 065
  3. MELATONIN [Concomitant]
     Active Substance: MELATONIN
     Route: 065
  4. TRAZODONE [Suspect]
     Active Substance: TRAZODONE HYDROCHLORIDE
     Indication: SLEEP DISORDER
     Route: 065
     Dates: start: 20170110, end: 20170419

REACTIONS (36)
  - Heart rate increased [Unknown]
  - Migraine [Unknown]
  - Muscle spasms [Unknown]
  - Fall [Unknown]
  - Memory impairment [Unknown]
  - Vision blurred [Unknown]
  - Nervous system disorder [Unknown]
  - Urinary retention [Unknown]
  - Blood pressure increased [Unknown]
  - Pain [Unknown]
  - Muscle rigidity [Unknown]
  - Diarrhoea [Unknown]
  - Hunger [Unknown]
  - Urinary incontinence [Unknown]
  - Urinary tract infection [Unknown]
  - Pruritus [Unknown]
  - Nightmare [Unknown]
  - Contusion [Unknown]
  - Insomnia [Unknown]
  - Acne cystic [Unknown]
  - Agitation [Unknown]
  - Product use in unapproved indication [Unknown]
  - Body temperature increased [Unknown]
  - Hyperhidrosis [Unknown]
  - Balance disorder [Unknown]
  - Withdrawal syndrome [Unknown]
  - Feeling hot [Unknown]
  - Paralysis [Unknown]
  - Gait inability [Unknown]
  - Palpitations [Unknown]
  - Lip blister [Unknown]
  - Feeling cold [Unknown]
  - Constipation [Unknown]
  - Oropharyngeal pain [Unknown]
  - Blood urine present [Unknown]
  - Amnesia [Unknown]

NARRATIVE: CASE EVENT DATE: 20170110
